FAERS Safety Report 23113483 (Version 1)
Quarter: 2023Q4

REPORT INFORMATION
  Report Type: Spontaneous
  Country: US (occurrence: US)
  Receive Date: 20231027
  Receipt Date: 20231027
  Transmission Date: 20240109
  Serious: Yes (Other)
  Sender: FDA-Public Use
  Company Number: US-BRISTOL-MYERS SQUIBB COMPANY-2023-150822

PATIENT
  Age: 46 Year
  Sex: Male
  Weight: 90.72 kg

DRUGS (13)
  1. REVLIMID [Suspect]
     Active Substance: LENALIDOMIDE
     Indication: Plasma cell myeloma
     Dosage: FREQUENCY: 14D ON 7D OFF.
     Route: 048
  2. REVLIMID [Suspect]
     Active Substance: LENALIDOMIDE
     Dosage: 10 CAPSULE. (28 CT)
     Route: 048
     Dates: start: 20230906, end: 20230920
  3. REVLIMID [Suspect]
     Active Substance: LENALIDOMIDE
     Dosage: 25 CAPSULE. (21 CT)
     Route: 048
     Dates: start: 20230920, end: 20230920
  4. REVLIMID [Suspect]
     Active Substance: LENALIDOMIDE
     Dosage: (21 CT)
     Route: 048
     Dates: start: 20231013
  5. POTASSIUM CHLORIDE [Concomitant]
     Active Substance: POTASSIUM CHLORIDE
     Indication: Product used for unknown indication
     Dosage: DOSE: 20 MEQ/15
     Route: 048
     Dates: start: 20230906
  6. NEOMYCIN;POLYMYXIN [Concomitant]
     Indication: Product used for unknown indication
     Dosage: DOSE: 3.5-10000.?DEXAMETH
     Route: 047
     Dates: start: 20230906
  7. POLYMYXIN B -TRIMETHOPRIM OPHTHA. [Concomitant]
     Indication: Product used for unknown indication
     Dosage: DOSE: 10000-0.1
     Route: 047
     Dates: start: 20230906
  8. LEVOTHYROXINE SODIUM [Concomitant]
     Active Substance: LEVOTHYROXINE SODIUM
     Indication: Product used for unknown indication
     Route: 048
     Dates: start: 20230906
  9. METOPROLOL SUCCINATE [Concomitant]
     Active Substance: METOPROLOL SUCCINATE
     Indication: Product used for unknown indication
     Dosage: ER
     Route: 048
     Dates: start: 20230906
  10. ELIQUIS [Concomitant]
     Active Substance: APIXABAN
     Indication: Product used for unknown indication
     Route: 048
     Dates: start: 20230906, end: 20230926
  11. ERYTHROMYCIN [Concomitant]
     Active Substance: ERYTHROMYCIN
     Indication: Product used for unknown indication
     Route: 047
     Dates: start: 20230906
  12. ASPIRIN [Concomitant]
     Active Substance: ASPIRIN
     Indication: Product used for unknown indication
     Dosage: DELAYED-RELEASE TABLET
     Route: 048
     Dates: start: 20230926
  13. DEXAMETHASONE [Concomitant]
     Active Substance: DEXAMETHASONE
     Indication: Product used for unknown indication
     Dosage: FREQUENCY: PRN.?COMMENTS: DDI NOTED WITH REVLIMID BU
     Route: 048
     Dates: start: 20230926

REACTIONS (4)
  - Diarrhoea [Not Recovered/Not Resolved]
  - Infection [Unknown]
  - Neuropathy peripheral [Unknown]
  - Off label use [Unknown]
